FAERS Safety Report 8733841 (Version 2)
Quarter: 2012Q4

REPORT INFORMATION
  Report Type: 
  Country: DE (occurrence: DE)
  Receive Date: 20120821
  Receipt Date: 20121003
  Transmission Date: 20130627
  Serious: Yes (Other)
  Sender: FDA-Public Use
  Company Number: PHHY2012DE071461

PATIENT
  Sex: Male

DRUGS (1)
  1. RASILEZ HCT [Suspect]

REACTIONS (2)
  - Circulatory collapse [Unknown]
  - Drug intolerance [Unknown]
